FAERS Safety Report 6265197-X (Version None)
Quarter: 2009Q3

REPORT INFORMATION
  Report Type: 
  Country: None (occurrence: None)
  Receive Date: 20090709
  Receipt Date: 20090709
  Transmission Date: 20100115
  Serious: No
  Sender: FDA-Public Use
  Company Number: None

PATIENT
  Sex: Female
  Weight: 68.0396 kg

DRUGS (3)
  1. BACLOFEN [Suspect]
     Indication: BACK PAIN
     Dosage: 3X DAY
  2. BACLOFEN [Suspect]
     Indication: SPINAL CORD INJURY
     Dosage: 3X DAY
  3. BACLOFEN [Suspect]
     Indication: SPINAL FRACTURE
     Dosage: 3X DAY

REACTIONS (5)
  - AGEUSIA [None]
  - ARTHRALGIA [None]
  - ASTHENIA [None]
  - DIZZINESS [None]
  - VISION BLURRED [None]
